FAERS Safety Report 17065936 (Version 1)
Quarter: 2019Q4

REPORT INFORMATION
  Report Type: Spontaneous
  Country: BR (occurrence: BR)
  Receive Date: 20191122
  Receipt Date: 20191122
  Transmission Date: 20200122
  Serious: Yes (Other)
  Sender: FDA-Public Use
  Company Number: BR-009507513-1911BRA006007

PATIENT
  Sex: Female
  Weight: 82 kg

DRUGS (3)
  1. DIAMICRON [Concomitant]
     Active Substance: GLICLAZIDE
     Indication: TYPE 2 DIABETES MELLITUS
     Dosage: 2 TABLETS BY THE MORNING
     Route: 048
  2. LOSARTAN. [Concomitant]
     Active Substance: LOSARTAN
     Indication: HYPERTENSION
     Dosage: 1 TABLET BY THE MORNING AND 1 TABLET AT NIGHT
     Route: 048
  3. JANUMET [Suspect]
     Active Substance: METFORMIN HYDROCHLORIDE\SITAGLIPTIN PHOSPHATE
     Indication: TYPE 2 DIABETES MELLITUS
     Dosage: 1 TABLET BY THE MORNING AND 1 TABLET AT NIGHT.
     Route: 048
     Dates: start: 2014

REACTIONS (8)
  - Cerebrovascular accident [Unknown]
  - Vitamin D deficiency [Unknown]
  - Peripheral swelling [Unknown]
  - Fibromyalgia [Unknown]
  - Angina pectoris [Unknown]
  - Blood pressure abnormal [Unknown]
  - Blood triglycerides increased [Unknown]
  - Blood glucose fluctuation [Unknown]

NARRATIVE: CASE EVENT DATE: 2016
